FAERS Safety Report 5146485-7 (Version None)
Quarter: 2006Q4

REPORT INFORMATION
  Report Type: 
  Country: None (occurrence: None)
  Receive Date: 20061102
  Receipt Date: 20061022
  Transmission Date: 20070319
  Serious: Yes (Hospitalization)
  Sender: FDA-Public Use
  Company Number: 2006100035

PATIENT
  Age: 35 Year
  Sex: Female

DRUGS (1)
  1. ASTELIN [Suspect]
     Indication: ILL-DEFINED DISORDER

REACTIONS (2)
  - ATRIAL FIBRILLATION [None]
  - PALPITATIONS [None]
